FAERS Safety Report 9258179 (Version 2)
Quarter: 2013Q2

REPORT INFORMATION
  Report Type: Spontaneous
  Country: JP (occurrence: JP)
  Receive Date: 20130426
  Receipt Date: 20130517
  Transmission Date: 20140414
  Serious: Yes (Other)
  Sender: FDA-Public Use
  Company Number: JP-BRISTOL-MYERS SQUIBB COMPANY-18833533

PATIENT
  Age: 57 Year
  Sex: Male
  Weight: 52 kg

DRUGS (10)
  1. ERBITUX SOLN FOR INF 5MG/ML [Suspect]
     Indication: HYPOPHARYNGEAL CANCER
     Route: 041
     Dates: start: 20130218, end: 20130307
  2. MINOCYCLINE HCL [Concomitant]
     Indication: PROPHYLAXIS
     Route: 048
     Dates: start: 20130218, end: 20130304
  3. CRAVIT [Concomitant]
     Indication: PYREXIA
     Route: 048
     Dates: start: 20130227
  4. CALONAL [Concomitant]
     Indication: PAIN
     Route: 048
     Dates: start: 20120326
  5. CEFEPIME HCL [Concomitant]
     Indication: INFECTION PROPHYLAXIS
     Route: 065
     Dates: start: 20130304
  6. NAIXAN [Concomitant]
     Indication: PYREXIA
     Route: 048
     Dates: start: 20130304
  7. OXINORM [Concomitant]
     Indication: OROPHARYNGEAL PAIN
     Route: 048
     Dates: start: 20130305
  8. OXYCONTIN [Concomitant]
     Indication: ANALGESIC THERAPY
     Route: 048
     Dates: start: 20120326
  9. MAGLAX [Concomitant]
     Indication: DISBACTERIOSIS
     Route: 048
     Dates: start: 20120326
  10. URSO [Concomitant]
     Route: 048
     Dates: start: 20130307

REACTIONS (1)
  - Cardiac failure [Recovered/Resolved]
